FAERS Safety Report 8330445-9 (Version None)
Quarter: 2012Q2

REPORT INFORMATION
  Report Type: 
  Country: None (occurrence: None)
  Receive Date: 20120502
  Receipt Date: 20120402
  Transmission Date: 20120825
  Serious: No
  Sender: FDA-Public Use
  Company Number: US-AMGEN-USASP2012020944

PATIENT
  Age: 45 Year
  Sex: Female

DRUGS (1)
  1. ENBREL [Suspect]
     Indication: COLITIS ULCERATIVE
     Dosage: 50 MG, QWK
     Dates: start: 20081001, end: 20120322

REACTIONS (4)
  - RESPIRATORY TRACT INFECTION VIRAL [None]
  - CANDIDIASIS [None]
  - GASTROENTERITIS VIRAL [None]
  - SINUSITIS [None]
